FAERS Safety Report 20637332 (Version 1)
Quarter: 2022Q1

REPORT INFORMATION
  Report Type: Spontaneous
  Country: US (occurrence: US)
  Receive Date: 20220325
  Receipt Date: 20220325
  Transmission Date: 20220423
  Serious: Yes (Other)
  Sender: FDA-Public Use
  Company Number: US-BAYER-2022A039801

PATIENT
  Age: 38 Year
  Sex: Female

DRUGS (2)
  1. INTERFERON BETA-1B [Suspect]
     Active Substance: INTERFERON BETA-1B
     Indication: Multiple sclerosis
     Dosage: THREE TIMES WEEKLY
     Route: 058
     Dates: start: 2009, end: 2010
  2. INTERFERON BETA-1B [Suspect]
     Active Substance: INTERFERON BETA-1B
     Indication: Multiple sclerosis
     Dosage: UNK
     Dates: start: 201505

REACTIONS (9)
  - Multiple sclerosis [None]
  - Transaminases increased [None]
  - Multiple sclerosis relapse [None]
  - Hemiparesis [None]
  - Multiple sclerosis [None]
  - Immune reconstitution inflammatory syndrome [None]
  - Liver function test increased [None]
  - Tremor [None]
  - Rebound effect [None]

NARRATIVE: CASE EVENT DATE: 20090101
